FAERS Safety Report 6030135-1 (Version None)
Quarter: 2009Q1

REPORT INFORMATION
  Report Type: 
  Country: None (occurrence: None)
  Receive Date: 20090107
  Receipt Date: 20081230
  Transmission Date: 20090719
  Serious: Yes (Hospitalization, Other)
  Sender: FDA-Public Use
  Company Number: AU-MERCK-0812AUS00114

PATIENT
  Age: 63 Year
  Sex: Female
  Weight: 45 kg

DRUGS (3)
  1. FOSAMAX [Suspect]
     Indication: OSTEOPOROSIS
     Route: 048
     Dates: start: 20040101, end: 20080901
  2. FOSAMAX [Suspect]
     Indication: FRACTURE
     Route: 048
     Dates: start: 20040101, end: 20080901
  3. ERYTHROMYCIN [Concomitant]
     Route: 065
     Dates: start: 20000101

REACTIONS (7)
  - BONE DENSITY DECREASED [None]
  - LOOSE TOOTH [None]
  - NASAL CYST [None]
  - OSTEONECROSIS [None]
  - PNEUMONIA [None]
  - TOOTH DISORDER [None]
  - TOOTHACHE [None]
